FAERS Safety Report 7226792-4 (Version None)
Quarter: 2011Q1

REPORT INFORMATION
  Report Type: 
  Country: None (occurrence: None)
  Receive Date: 20110114
  Receipt Date: 20110106
  Transmission Date: 20110831
  Serious: Yes (Other)
  Sender: FDA-Public Use
  Company Number: JP-JNJFOC-20110102838

PATIENT
  Age: 29 Year
  Sex: Female

DRUGS (2)
  1. FLORID [Suspect]
     Indication: VULVOVAGINAL CANDIDIASIS
     Route: 067
  2. FLORID [Suspect]
     Route: 067

REACTIONS (3)
  - URTICARIA [None]
  - SWELLING [None]
  - HEPATITIS [None]
